FAERS Safety Report 5526146-2 (Version None)
Quarter: 2007Q4

REPORT INFORMATION
  Report Type: 
  Country: None (occurrence: None)
  Receive Date: 20071120
  Receipt Date: 20060825
  Transmission Date: 20080405
  Serious: Yes (Death, Other)
  Sender: FDA-Public Use
  Company Number: 2006VX002011

PATIENT
  Age: 51 Year
  Sex: Female

DRUGS (2)
  1. LIBRAX [Suspect]
     Dosage: PO
     Route: 048
  2. TUINAL (TUINAL) [Suspect]
     Dosage: PO
     Route: 048

REACTIONS (2)
  - COMPLETED SUICIDE [None]
  - MULTIPLE DRUG OVERDOSE [None]
